FAERS Safety Report 9294378 (Version 4)
Quarter: 2013Q3

REPORT INFORMATION
  Report Type: Spontaneous
  Country: US (occurrence: US)
  Receive Date: 20130517
  Receipt Date: 20130716
  Transmission Date: 20140515
  Serious: No
  Sender: FDA-Public Use
  Company Number: US-BIOGENIDEC-2013BI043646

PATIENT
  Sex: Female

DRUGS (1)
  1. TYSABRI [Suspect]
     Indication: MULTIPLE SCLEROSIS
     Route: 042
     Dates: start: 20090119

REACTIONS (8)
  - Blood test abnormal [Unknown]
  - Pyrexia [Recovered/Resolved]
  - Malaise [Unknown]
  - Liver function test abnormal [Recovered/Resolved with Sequelae]
  - Pain [Recovered/Resolved with Sequelae]
  - Frustration [Recovered/Resolved with Sequelae]
  - Arthralgia [Recovered/Resolved with Sequelae]
  - Oropharyngeal pain [Recovered/Resolved with Sequelae]
